FAERS Safety Report 15037771 (Version 1)
Quarter: 2018Q2

REPORT INFORMATION
  Report Type: Spontaneous
  Country: US (occurrence: US)
  Receive Date: 20180620
  Receipt Date: 20180620
  Transmission Date: 20180711
  Serious: No
  Sender: FDA-Public Use
  Company Number: US-BEH-2018091948

PATIENT
  Age: 55 Year
  Sex: Male
  Weight: 90.7 kg

DRUGS (6)
  1. TRAMADOL. [Concomitant]
     Active Substance: TRAMADOL
  2. LIDOCAINE. [Concomitant]
     Active Substance: LIDOCAINE
  3. DIPHENHYDRAMINE. [Concomitant]
     Active Substance: DIPHENHYDRAMINE
  4. ACETAMINOPHEN. [Concomitant]
     Active Substance: ACETAMINOPHEN
  5. HIZENTRA [Suspect]
     Active Substance: HUMAN IMMUNOGLOBULIN G
     Indication: HYPOGAMMAGLOBULINAEMIA
     Dosage: 9 G, QW
     Route: 058
     Dates: start: 20180531
  6. EPINEPHRINE. [Concomitant]
     Active Substance: EPINEPHRINE

REACTIONS (7)
  - Headache [Unknown]
  - Influenza [Unknown]
  - Joint swelling [Unknown]
  - Pain [Unknown]
  - Restless legs syndrome [Unknown]
  - Arthralgia [Unknown]
  - Fatigue [Unknown]

NARRATIVE: CASE EVENT DATE: 20180615
